FAERS Safety Report 12541982 (Version 2)
Quarter: 2016Q3

REPORT INFORMATION
  Report Type: Report from Study
  Country: US (occurrence: US)
  Receive Date: 20160708
  Receipt Date: 20160725
  Transmission Date: 20161109
  Serious: Yes (Hospitalization)
  Sender: FDA-Public Use
  Company Number: US-ACTELION-A-US2015-114320

PATIENT
  Age: 55 Year
  Sex: Female

DRUGS (3)
  1. TRACLEER [Suspect]
     Active Substance: BOSENTAN
     Indication: PULMONARY ARTERIAL HYPERTENSION
     Dosage: 125 MG, BID
     Route: 048
     Dates: start: 20060531
  2. COUMADIN [Concomitant]
     Active Substance: WARFARIN SODIUM
  3. SILDENAFIL. [Concomitant]
     Active Substance: SILDENAFIL

REACTIONS (9)
  - Blood iron [Unknown]
  - Ulcer haemorrhage [Recovering/Resolving]
  - Chest pain [Unknown]
  - Diverticulitis intestinal haemorrhagic [Recovering/Resolving]
  - Dyspnoea [Unknown]
  - Oxygen saturation decreased [Unknown]
  - Cardiac failure congestive [Unknown]
  - Anaemia [Unknown]
  - Fatigue [Unknown]
